FAERS Safety Report 7970841-2 (Version None)
Quarter: 2011Q4

REPORT INFORMATION
  Report Type: 
  Country: None (occurrence: None)
  Receive Date: 20111212
  Receipt Date: 20111201
  Transmission Date: 20120403
  Serious: Yes (Hospitalization)
  Sender: FDA-Public Use
  Company Number: US-GLAXOSMITHKLINE-A0956926A

PATIENT
  Age: 71 Year
  Sex: Female
  Weight: 72.4 kg

DRUGS (2)
  1. CETUXIMAB [Suspect]
     Indication: ANAL CANCER
     Dosage: 415MG WEEKLY
     Route: 042
  2. LAPATINIB [Suspect]
     Indication: ANAL CANCER
     Dosage: 1000MG PER DAY
     Route: 048

REACTIONS (2)
  - DEHYDRATION [None]
  - HYPOGLYCAEMIA [None]
